FAERS Safety Report 6443232-3 (Version None)
Quarter: 2009Q4

REPORT INFORMATION
  Report Type: 
  Country: None (occurrence: None)
  Receive Date: 20091117
  Receipt Date: 20091110
  Transmission Date: 20100525
  Serious: Yes (Hospitalization, Other)
  Sender: FDA-Public Use
  Company Number: US-AMGEN-US370197

PATIENT
  Sex: Male
  Weight: 80 kg

DRUGS (3)
  1. NPLATE [Suspect]
     Indication: IDIOPATHIC THROMBOCYTOPENIC PURPURA
     Route: 058
     Dates: start: 20091002
  2. IMMUNOGLOBULINS [Concomitant]
     Route: 042
     Dates: start: 20091023
  3. SOLU-MEDROL [Concomitant]
     Route: 042
     Dates: start: 20091022, end: 20091024

REACTIONS (8)
  - DEEP VEIN THROMBOSIS [None]
  - DISSEMINATED INTRAVASCULAR COAGULATION [None]
  - HAEMORRHAGE [None]
  - HEAD INJURY [None]
  - PLATELET COUNT DECREASED [None]
  - PULMONARY EMBOLISM [None]
  - SYNCOPE [None]
  - TACHYCARDIA [None]
